FAERS Safety Report 20177205 (Version 2)
Quarter: 2022Q1

REPORT INFORMATION
  Report Type: Report from Study
  Country: CN (occurrence: CN)
  Receive Date: 20211213
  Receipt Date: 20220310
  Transmission Date: 20220423
  Serious: Yes (Life-Threatening, Hospitalization, Other)
  Sender: FDA-Public Use
  Company Number: CN-ELI_LILLY_AND_COMPANY-CN202110005141

PATIENT
  Age: 53 Year
  Sex: Female
  Weight: 67 kg

DRUGS (8)
  1. GEMCITABINE HYDROCHLORIDE [Suspect]
     Active Substance: GEMCITABINE HYDROCHLORIDE
     Indication: Triple negative breast cancer
     Dosage: 1000 MG/M2, ON DAYS 1 AND 8 OF EACH 3-WEEK CYCLE
     Route: 042
     Dates: start: 20210910, end: 20211012
  2. GEMCITABINE HYDROCHLORIDE [Suspect]
     Active Substance: GEMCITABINE HYDROCHLORIDE
     Dosage: 1000 MG/M2, ON DAYS 1 AND 8 OF EACH 3-WEEK CYCLE
     Route: 042
     Dates: start: 20211021, end: 20211111
  3. GEMCITABINE HYDROCHLORIDE [Suspect]
     Active Substance: GEMCITABINE HYDROCHLORIDE
     Dosage: 750 MG/M2, ON DAYS 1 AND 8 OF EACH 3-WEEK CYCLE
     Route: 042
     Dates: end: 20220127
  4. CARBOPLATIN [Concomitant]
     Active Substance: CARBOPLATIN
     Indication: Triple negative breast cancer
     Dosage: 180 MG, DOSE TO TARGET AUC 2 MG/ML/MIN, ON DAYS 1 AND 8 OF EACH 3-WEEK TREATMENT CYCLE
     Route: 042
     Dates: start: 20210910, end: 20211012
  5. CARBOPLATIN [Concomitant]
     Active Substance: CARBOPLATIN
     Dosage: 180 MG, DOSE TO TARGET AUC 2 MG/ML/MIN, ON DAYS 1 AND 8 OF EACH 3-WEEK TREATMENT CYCLE
     Route: 042
     Dates: start: 20211021
  6. CARBOPLATIN [Concomitant]
     Active Substance: CARBOPLATIN
     Dosage: 179 MG, DOSE TO TARGET AUC 2 MG/ML/MIN, ON DAYS 1 AND 8 OF EACH 3-WEEK TREATMENT CYCLE
     Route: 042
     Dates: start: 20211111, end: 20220127
  7. BICYCLOL [Concomitant]
     Active Substance: BICYCLOL
     Indication: Product used for unknown indication
     Dosage: UNK, UNKNOWN
     Route: 065
     Dates: start: 20211019
  8. HERBALS\DIAMMONIUM GLYCYRRHIZINATE [Concomitant]
     Active Substance: HERBALS\DIAMMONIUM GLYCYRRHIZINATE
     Indication: Product used for unknown indication
     Dosage: UNK, UNKNOWN
     Route: 065
     Dates: start: 20210926

REACTIONS (5)
  - Neutrophil count decreased [Recovered/Resolved]
  - Platelet count decreased [Not Recovered/Not Resolved]
  - Platelet count decreased [Recovered/Resolved]
  - Neutrophil count decreased [Recovered/Resolved]
  - Platelet count decreased [Recovered/Resolved]

NARRATIVE: CASE EVENT DATE: 20210925
